FAERS Safety Report 9366183 (Version 3)
Quarter: 2013Q4

REPORT INFORMATION
  Report Type: Spontaneous
  Country: JP (occurrence: JP)
  Receive Date: 20130625
  Receipt Date: 20131121
  Transmission Date: 20140711
  Serious: Yes (Hospitalization, Other)
  Sender: FDA-Public Use
  Company Number: JP-ASTELLAS-2013JP006868

PATIENT
  Age: 61 Year
  Sex: Female
  Weight: 64.2 kg

DRUGS (13)
  1. PROGRAF [Suspect]
     Indication: RHEUMATOID ARTHRITIS
     Dosage: 3 MG, UID/QD
     Route: 048
     Dates: start: 20130212
  2. PROGRAF [Suspect]
     Dosage: 4 MG, UNKNOWN/D
     Route: 048
     Dates: start: 20130730
  3. BETANIS [Suspect]
     Indication: CYSTITIS
     Dosage: 50 MG, UID/QD
     Route: 048
     Dates: start: 20130326
  4. MICARDIS [Suspect]
     Indication: HYPERTENSION
     Dosage: 40 MG, UID/QD
     Route: 048
     Dates: start: 20071101
  5. LOXONIN [Suspect]
     Indication: RHEUMATOID ARTHRITIS
     Dosage: UNK
     Route: 061
     Dates: start: 20120621
  6. LOXONIN [Suspect]
     Indication: RHEUMATOID ARTHRITIS
     Dosage: UNK
     Route: 061
     Dates: start: 20120703
  7. METGLUCO [Suspect]
     Indication: DIABETES MELLITUS
     Dosage: 250 MG, BID
     Route: 048
     Dates: start: 20120614, end: 20130529
  8. METGLUCO [Suspect]
     Dosage: 500 MG, BID
     Route: 048
     Dates: start: 20130530, end: 20130612
  9. METGLUCO [Suspect]
     Dosage: 500 MG, UNKNOWN/D
     Route: 048
     Dates: start: 20130730
  10. CERTOLIZUMAB PEGOL [Suspect]
     Indication: RHEUMATOID ARTHRITIS
     Dosage: UNK
     Route: 065
     Dates: start: 20120313
  11. CERTOLIZUMAB PEGOL [Suspect]
     Dosage: UNK
     Route: 065
     Dates: end: 20130521
  12. TRAZENTA [Concomitant]
     Indication: DIABETES MELLITUS
     Dosage: 5 MG, UID/QD
     Route: 048
     Dates: start: 20130502, end: 20130612
  13. TRAZENTA [Concomitant]
     Dosage: 5 MG, UID/QD
     Route: 048
     Dates: start: 20130730

REACTIONS (4)
  - Off label use [Unknown]
  - Intentional drug misuse [Unknown]
  - Diabetes mellitus [Recovered/Resolved]
  - Breast cancer female [Recovered/Resolved]
